FAERS Safety Report 7841075 (Version 4)
Quarter: 2015Q4

REPORT INFORMATION
  Report Type: Report from Study
  Country: JP (occurrence: JP)
  Receive Date: 20110304
  Receipt Date: 20151218
  Transmission Date: 20160305
  Serious: Yes (Hospitalization, Other)
  Sender: FDA-Public Use
  Company Number: JP-BAYER-2011-015582

PATIENT
  Age: 70 Year
  Sex: Female
  Weight: 48 kg

DRUGS (7)
  1. CORTRIL [Concomitant]
     Active Substance: HYDROCORTISONE
     Dosage: DAILY DOSE 10.5 MG
     Route: 048
     Dates: start: 20081002, end: 20090205
  2. SORAFENIB [Suspect]
     Active Substance: SORAFENIB
     Indication: RENAL CELL CARCINOMA
     Dosage: DAILY DOSE 800 MG
     Route: 048
     Dates: start: 20080802, end: 20081022
  3. SORAFENIB [Suspect]
     Active Substance: SORAFENIB
     Indication: RENAL CELL CARCINOMA
     Dosage: DAILY DOSE 400 MG
     Dates: start: 20081106, end: 20081116
  4. SORAFENIB [Suspect]
     Active Substance: SORAFENIB
     Indication: RENAL CELL CARCINOMA
     Dosage: DAILY DOSE 400 MG
     Dates: start: 20081217, end: 20090204
  5. FASTIC [Concomitant]
     Active Substance: NATEGLINIDE
     Dosage: DAILY DOSE 270 MG
     Route: 048
     Dates: start: 20081002, end: 20090205
  6. TAGAMET [Concomitant]
     Active Substance: CIMETIDINE
     Dosage: DAILY DOSE 800 MG
     Route: 048
     Dates: start: 20081009, end: 20090205
  7. SORAFENIB [Suspect]
     Active Substance: SORAFENIB
     Indication: RENAL CELL CARCINOMA
     Dosage: DAILY DOSE 400 MG
     Dates: start: 20081127, end: 20081214

REACTIONS (16)
  - Aspartate aminotransferase increased [Recovering/Resolving]
  - Oedema peripheral [Unknown]
  - Constipation [Recovering/Resolving]
  - Rash [Not Recovered/Not Resolved]
  - Hypokalaemia [Recovering/Resolving]
  - Hypertension [Recovering/Resolving]
  - Blood creatinine increased [Unknown]
  - Pruritus [Recovering/Resolving]
  - Rash [Recovered/Resolved]
  - Gastric ulcer [Unknown]
  - Malaise [Recovering/Resolving]
  - Platelet count decreased [Recovering/Resolving]
  - Pruritus [Recovered/Resolved]
  - Oedema [Recovering/Resolving]
  - Decreased appetite [Recovering/Resolving]
  - Stomatitis [Recovering/Resolving]

NARRATIVE: CASE EVENT DATE: 20081009
